FAERS Safety Report 12270861 (Version 3)
Quarter: 2016Q4

REPORT INFORMATION
  Report Type: Spontaneous
  Country: US (occurrence: US)
  Receive Date: 20160415
  Receipt Date: 20161012
  Transmission Date: 20170207
  Serious: No
  Sender: FDA-Public Use
  Company Number: US-TEVA-634832USA

PATIENT
  Sex: Female

DRUGS (7)
  1. LOPENSIN [Concomitant]
  2. ZECUITY [Suspect]
     Active Substance: SUMATRIPTAN SUCCINATE
     Route: 062
  3. METHYLSCOPOLAMINE [Concomitant]
  4. ZYRTEC [Concomitant]
     Active Substance: CETIRIZINE HYDROCHLORIDE
  5. ZOLOFT [Concomitant]
     Active Substance: SERTRALINE HYDROCHLORIDE
  6. COLESTID [Concomitant]
     Active Substance: COLESTIPOL HYDROCHLORIDE
  7. SINGULAIR [Concomitant]
     Active Substance: MONTELUKAST SODIUM

REACTIONS (14)
  - Application site erythema [Recovered/Resolved]
  - Product physical issue [Recovered/Resolved]
  - Drug ineffective [Unknown]
  - Application site rash [Recovered/Resolved]
  - Application site pain [Recovered/Resolved]
  - Application site discolouration [Recovered/Resolved]
  - Application site urticaria [Recovered/Resolved]
  - Application site discomfort [Recovered/Resolved]
  - Headache [Recovered/Resolved]
  - Application site pruritus [Recovered/Resolved]
  - Application site inflammation [Recovered/Resolved]
  - Paraesthesia [Recovered/Resolved]
  - Application site irritation [Recovered/Resolved]
  - Product leakage [Recovered/Resolved]
